FAERS Safety Report 18570504 (Version 3)
Quarter: 2021Q4

REPORT INFORMATION
  Report Type: Report from Study
  Country: NL (occurrence: NL)
  Receive Date: 20201202
  Receipt Date: 20211115
  Transmission Date: 20220303
  Serious: Yes (Hospitalization)
  Sender: FDA-Public Use
  Company Number: NL-MYLANLABS-2020M1028575

PATIENT
  Sex: Female

DRUGS (1)
  1. GLATIRAMER ACETATE [Suspect]
     Active Substance: GLATIRAMER ACETATE
     Indication: Multiple sclerosis
     Dosage: UNK UNK, 3XW
     Route: 058

REACTIONS (10)
  - Administration site induration [Recovering/Resolving]
  - Dizziness [Recovering/Resolving]
  - Sense of oppression [Recovering/Resolving]
  - Dyspnoea [Unknown]
  - Dysphagia [Unknown]
  - Cystitis noninfective [Recovering/Resolving]
  - Weight decreased [Recovering/Resolving]
  - Central nervous system lesion [Not Recovered/Not Resolved]
  - Product dose omission issue [Unknown]
  - Intentional product misuse [Unknown]

NARRATIVE: CASE EVENT DATE: 20200101
